FAERS Safety Report 16366715 (Version 1)
Quarter: 2019Q3

REPORT INFORMATION
  Report Type: Spontaneous
  Country: US (occurrence: US)
  Receive Date: 20190528
  Receipt Date: 20190528
  Transmission Date: 20191004
  Serious: Yes (Disabling)
  Sender: FDA-Public Use
  Company Number: None

PATIENT
  Age: 6 Year
  Sex: Female
  Weight: 29.25 kg

DRUGS (2)
  1. SINGULAIR [Suspect]
     Active Substance: MONTELUKAST SODIUM
     Indication: MULTIPLE ALLERGIES
     Dates: start: 20081001, end: 20090401
  2. PROZAC [Concomitant]
     Active Substance: FLUOXETINE HYDROCHLORIDE

REACTIONS (10)
  - Crying [None]
  - Disturbance in attention [None]
  - Hypersensitivity [None]
  - Personality change [None]
  - Depressed mood [None]
  - Social avoidant behaviour [None]
  - Neurodevelopmental disorder [None]
  - Eating disorder [None]
  - Depression [None]
  - Sleep terror [None]

NARRATIVE: CASE EVENT DATE: 20090401
